FAERS Safety Report 9877915 (Version 1)
Quarter: 2014Q1

REPORT INFORMATION
  Report Type: Spontaneous
  Country: US (occurrence: US)
  Receive Date: 20140206
  Receipt Date: 20140206
  Transmission Date: 20141002
  Serious: No
  Sender: FDA-Public Use
  Company Number: US-B.I. PHARMACEUTICALS,INC./RIDGEFIELD-2014-BI-03812BP

PATIENT
  Age: 78 Year
  Sex: Female
  Weight: 64 kg

DRUGS (3)
  1. SPIRIVA [Suspect]
     Indication: BRONCHITIS CHRONIC
     Dosage: 18 MCG
     Route: 055
     Dates: start: 2004
  2. HYDROXYZINE [Concomitant]
     Indication: HYPERSENSITIVITY
     Dosage: 50 MG
     Route: 048
     Dates: start: 1986
  3. NASONEX [Concomitant]
     Indication: SINUS DISORDER
     Dosage: FORMULATION: INHALATION SPRAY
     Route: 045

REACTIONS (1)
  - Fatigue [Not Recovered/Not Resolved]
